FAERS Safety Report 7460197-6 (Version None)
Quarter: 2011Q2

REPORT INFORMATION
  Report Type: 
  Country: None (occurrence: None)
  Receive Date: 20110505
  Receipt Date: 20110426
  Transmission Date: 20111010
  Serious: Yes (Other)
  Sender: FDA-Public Use
  Company Number: FR-ACTELION-A-CH2011-48003

PATIENT
  Sex: Female

DRUGS (6)
  1. TRACLEER [Suspect]
     Dosage: 125 MG, BID
     Route: 048
     Dates: start: 20101025, end: 20101213
  2. ALDACTAZINE [Concomitant]
  3. NEXIUM [Concomitant]
  4. TRACLEER [Suspect]
     Dosage: 62.5 MG, BID
     Route: 048
     Dates: start: 20100925, end: 20101024
  5. TRACLEER [Suspect]
     Indication: SKIN ULCER
     Dosage: 62.5 MG, BID
     Route: 048
     Dates: start: 20101214, end: 20110215
  6. MOTILIUM [Concomitant]

REACTIONS (2)
  - VERTIGO [None]
  - ASTHENIA [None]
